FAERS Safety Report 4440765-6 (Version None)
Quarter: 2004Q3

REPORT INFORMATION
  Report Type: 
  Country: None (occurrence: None)
  Receive Date: 20040825
  Receipt Date: 20040812
  Transmission Date: 20050211
  Serious: Yes (Hospitalization)
  Sender: FDA-Public Use
  Company Number: 601463

PATIENT
  Age: 63 Year
  Sex: Female
  Weight: 72.5755 kg

DRUGS (11)
  1. GAMMAGARD S/D [Suspect]
     Indication: MYASTHENIA GRAVIS
     Dosage: 30 GM;QD;INTRAVENOUS
     Route: 042
     Dates: start: 20040706, end: 20040709
  2. PREDNISONE [Concomitant]
  3. MESTINON [Concomitant]
  4. PREVACID [Concomitant]
  5. IBUPROFEN [Concomitant]
  6. AVAPRO [Concomitant]
  7. ALLEGRA [Concomitant]
  8. COLACE [Concomitant]
  9. VITAMIN E [Concomitant]
  10. VITAMIN C [Concomitant]
  11. ASPIRIN [Concomitant]

REACTIONS (5)
  - ABDOMINAL PAIN [None]
  - HEPATITIS A ANTIBODY POSITIVE [None]
  - HEPATITIS B ANTIBODY POSITIVE [None]
  - NAUSEA [None]
  - VOMITING [None]
